FAERS Safety Report 5469852-0 (Version None)
Quarter: 2007Q3

REPORT INFORMATION
  Report Type: 
  Country: None (occurrence: None)
  Receive Date: 20070927
  Receipt Date: 20070912
  Transmission Date: 20080115
  Serious: Yes (Other)
  Sender: FDA-Public Use
  Company Number: FR-AMGEN-UK244302

PATIENT
  Sex: Male

DRUGS (3)
  1. MIMPARA [Suspect]
     Indication: HYPERPARATHYROIDISM SECONDARY
     Route: 048
     Dates: start: 20070620
  2. SEVELAMER HCL [Concomitant]
  3. FOSRENOL [Concomitant]
     Dates: start: 20070401

REACTIONS (5)
  - DRUG INEFFECTIVE [None]
  - NAUSEA [None]
  - PRECOCIOUS PUBERTY [None]
  - VOMITING [None]
  - WEIGHT DECREASED [None]
